FAERS Safety Report 12373371 (Version 1)
Quarter: 2016Q2

REPORT INFORMATION
  Report Type: Spontaneous
  Country: US (occurrence: US)
  Receive Date: 20160516
  Receipt Date: 20160516
  Transmission Date: 20160815
  Serious: Yes (Other)
  Sender: FDA-Public Use
  Company Number: US-MYLANLABS-2015M1001049

PATIENT

DRUGS (4)
  1. HUMAN GROWTH HORMONE, RECOMBINANT [Concomitant]
     Active Substance: SOMATROPIN
     Dosage: UNK
  2. ELECTROLYTES NOS [Concomitant]
     Active Substance: ELECTROLYTES NOS
     Dosage: UNK
  3. MERCAPTAMINE [Suspect]
     Active Substance: CYSTEAMINE
     Dosage: ENTERIC-RELEASE (COATED IMMEDIATE-RELEASE CAPSULES)
  4. MERCAPTAMINE [Suspect]
     Active Substance: CYSTEAMINE
     Indication: CYSTINOSIS
     Dosage: IMMEDIATE-RELEASE
     Route: 065

REACTIONS (7)
  - Skin odour abnormal [Recovering/Resolving]
  - Breath odour [Recovering/Resolving]
  - Transplant rejection [Recovering/Resolving]
  - Hypertension [Unknown]
  - Inappropriate schedule of drug administration [Unknown]
  - Prescribed underdose [Unknown]
  - Blood creatinine increased [Unknown]
